FAERS Safety Report 10372370 (Version 1)
Quarter: 2014Q3

REPORT INFORMATION
  Report Type: Spontaneous
  Country: US (occurrence: US)
  Receive Date: 20140808
  Receipt Date: 20140808
  Transmission Date: 20150326
  Serious: No
  Sender: FDA-Public Use
  Company Number: US-BRISTOL-MYERS SQUIBB COMPANY-19126887

PATIENT
  Age: 45 Year
  Sex: Female
  Weight: 97.5 kg

DRUGS (4)
  1. IBUPROFEN. [Concomitant]
     Active Substance: IBUPROFEN
  2. SPRYCEL [Suspect]
     Active Substance: DASATINIB
     Indication: CHRONIC MYELOID LEUKAEMIA
     Route: 048
  3. ZOLPIDEM [Concomitant]
     Active Substance: ZOLPIDEM\ZOLPIDEM TARTRATE
  4. LASIX [Concomitant]
     Active Substance: FUROSEMIDE

REACTIONS (8)
  - Fatigue [Unknown]
  - Eye swelling [Unknown]
  - Gastrointestinal disorder [Unknown]
  - Gastrointestinal sounds abnormal [Unknown]
  - Headache [Unknown]
  - Joint swelling [Unknown]
  - Arthralgia [Unknown]
  - Photosensitivity reaction [Unknown]
